FAERS Safety Report 21992619 (Version 1)
Quarter: 2023Q1

REPORT INFORMATION
  Report Type: Spontaneous
  Country: US (occurrence: US)
  Receive Date: 20230215
  Receipt Date: 20230215
  Transmission Date: 20230418
  Serious: No
  Sender: FDA-Public Use
  Company Number: US-TARO PHARMACEUTICALS USA INC.-2022TAR01458

PATIENT

DRUGS (3)
  1. CLOCORTOLONE PIVALATE [Suspect]
     Active Substance: CLOCORTOLONE PIVALATE
     Indication: Dermatitis atopic
     Dosage: UNK, OD, TOPICALLY TO EYELID, UNDER EYE, CHEEKS, THIN LAYER
     Route: 061
     Dates: start: 20221125, end: 20221126
  2. CLARITIN [Concomitant]
     Active Substance: LORATADINE
     Indication: Product used for unknown indication
     Dosage: UNK
     Route: 065
  3. VITAMINS [Concomitant]
     Active Substance: VITAMINS
     Indication: Product used for unknown indication
     Dosage: UNK
     Route: 065

REACTIONS (5)
  - Erythema [Recovered/Resolved]
  - Eyelid irritation [Recovered/Resolved]
  - Flushing [Recovered/Resolved]
  - Pruritus [Recovered/Resolved]
  - Burning sensation [Recovered/Resolved]

NARRATIVE: CASE EVENT DATE: 20221126
